FAERS Safety Report 5482580-0 (Version None)
Quarter: 2007Q4

REPORT INFORMATION
  Report Type: 
  Country: None (occurrence: None)
  Receive Date: 20071011
  Receipt Date: 20070718
  Transmission Date: 20080405
  Serious: No
  Sender: FDA-Public Use
  Company Number: A0664837A

PATIENT
  Age: 45 Year
  Sex: Female

DRUGS (6)
  1. TYKERB [Suspect]
     Indication: BREAST CANCER
     Dosage: 750MG TWICE PER DAY
     Route: 048
     Dates: start: 20070717
  2. KEPPRA [Concomitant]
  3. LORAZEPAM [Concomitant]
  4. PROMETHAZINE [Concomitant]
  5. FEMARA [Concomitant]
  6. EFFEXOR [Concomitant]

REACTIONS (2)
  - DIARRHOEA [None]
  - PHARMACEUTICAL PRODUCT COMPLAINT [None]
